FAERS Safety Report 5481085-0 (Version None)
Quarter: 2007Q4

REPORT INFORMATION
  Report Type: 
  Country: None (occurrence: None)
  Receive Date: 20071003
  Receipt Date: 20070918
  Transmission Date: 20080405
  Serious: Yes (Other)
  Sender: FDA-Public Use
  Company Number: 161702ISR

PATIENT

DRUGS (2)
  1. TAMOXIFEN CITRATE [Suspect]
  2. TRASTUZUMAB [Suspect]

REACTIONS (1)
  - PERICARDIAL DISEASE [None]
